FAERS Safety Report 4366593-8 (Version None)
Quarter: 2004Q2

REPORT INFORMATION
  Report Type: 
  Country: None (occurrence: None)
  Receive Date: 20040527
  Receipt Date: 20040511
  Transmission Date: 20050107
  Serious: Yes (Life-Threatening, Hospitalization)
  Sender: FDA-Public Use
  Company Number: CN-GLAXOSMITHKLINE-B0332719A

PATIENT
  Age: 68 Year
  Sex: Male
  Weight: 75 kg

DRUGS (1)
  1. FORTUM [Suspect]
     Indication: PHARYNGITIS
     Dosage: 2G PER DAY
     Route: 042
     Dates: start: 20040504, end: 20040504

REACTIONS (19)
  - ANAPHYLACTIC SHOCK [None]
  - BLOOD ALKALINE PHOSPHATASE INCREASED [None]
  - CARDIAC ARREST [None]
  - CHEST PAIN [None]
  - DYSPNOEA [None]
  - ELECTROCARDIOGRAM ABNORMAL [None]
  - ELECTROCARDIOGRAM ST SEGMENT ELEVATION [None]
  - EYELID OEDEMA [None]
  - FACE OEDEMA [None]
  - FLUSHING [None]
  - HYPOTENSION [None]
  - MYOCARDIAL INFARCTION [None]
  - PALPITATIONS [None]
  - PERIPHERAL COLDNESS [None]
  - PRURITUS GENERALISED [None]
  - PULMONARY OEDEMA [None]
  - PULSE PRESSURE DECREASED [None]
  - RALES [None]
  - RESPIRATORY ARREST [None]
